FAERS Safety Report 25045018 (Version 1)
Quarter: 2025Q1

REPORT INFORMATION
  Report Type: Spontaneous
  Country: FR (occurrence: FR)
  Receive Date: 20250306
  Receipt Date: 20250306
  Transmission Date: 20250409
  Serious: Yes (Death, Other)
  Sender: RANBAXY
  Company Number: FR-AFSSAPS-AVGR2025000014

PATIENT
  Age: 65 Year
  Sex: Female
  Weight: 120 kg

DRUGS (2)
  1. MORPHINE [Suspect]
     Active Substance: MORPHINE
     Indication: Product used for unknown indication
     Route: 065
     Dates: start: 20230218, end: 20230218
  2. BROMAZEPAM [Suspect]
     Active Substance: BROMAZEPAM
     Indication: Product used for unknown indication
     Route: 065
     Dates: start: 20230218, end: 20230218

REACTIONS (3)
  - Poisoning deliberate [Fatal]
  - Asphyxia [Fatal]
  - Drug use disorder [Fatal]

NARRATIVE: CASE EVENT DATE: 20230218
